FAERS Safety Report 4559644-9 (Version None)
Quarter: 2005Q1

REPORT INFORMATION
  Report Type: 
  Country: None (occurrence: None)
  Receive Date: 20050113
  Receipt Date: 20041203
  Transmission Date: 20050727
  Serious: Yes (Hospitalization)
  Sender: FDA-Public Use
  Company Number: 377886

PATIENT
  Age: 41 Year
  Sex: Female
  Weight: 150 kg

DRUGS (2)
  1. FUZEON [Suspect]
     Indication: HIV INFECTION
     Dosage: 90 MG/ML   2 PER DAY    SUBUCTANEOUS
     Route: 058
     Dates: start: 20020617, end: 20040921
  2. ANTIRETROVIRALS (ANTIRETROVIRALS) [Concomitant]

REACTIONS (5)
  - DYSPNOEA [None]
  - JAUNDICE [None]
  - PNEUMONIA BACTERIAL [None]
  - VIRAL LOAD INCREASED [None]
  - WEIGHT DECREASED [None]
